FAERS Safety Report 9841177 (Version 3)
Quarter: 2016Q1

REPORT INFORMATION
  Report Type: Report from Study
  Country: US (occurrence: US)
  Receive Date: 20140124
  Receipt Date: 20160113
  Transmission Date: 20160526
  Serious: Yes (Other)
  Sender: FDA-Public Use
  Company Number: US-SANOFI-AVENTIS-2013SA079186

PATIENT
  Age: 48 Year
  Sex: Male

DRUGS (3)
  1. AUBAGIO [Suspect]
     Active Substance: TERIFLUNOMIDE
     Indication: MULTIPLE SCLEROSIS
     Dosage: STARTED ABOUT 3 MONTH AGO
     Route: 048
     Dates: start: 20130430
  2. AUBAGIO [Suspect]
     Active Substance: TERIFLUNOMIDE
     Indication: MULTIPLE SCLEROSIS
     Route: 048
  3. AMPYRA [Concomitant]
     Active Substance: DALFAMPRIDINE

REACTIONS (8)
  - Multiple sclerosis [Unknown]
  - Heat exhaustion [Recovered/Resolved]
  - Fatigue [Unknown]
  - Acute kidney injury [Recovered/Resolved]
  - Headache [Unknown]
  - Dermal cyst [Recovered/Resolved]
  - Unevaluable event [Not Recovered/Not Resolved]
  - Off label use [Unknown]

NARRATIVE: CASE EVENT DATE: 20130628
